FAERS Safety Report 11659868 (Version 1)
Quarter: 2015Q4

REPORT INFORMATION
  Report Type: Spontaneous
  Country: US (occurrence: US)
  Receive Date: 20151026
  Receipt Date: 20151026
  Transmission Date: 20160304
  Serious: Yes (Hospitalization)
  Sender: FDA-Public Use
  Company Number: US-JNJFOC-20151013486

PATIENT
  Sex: Male
  Weight: 84 kg

DRUGS (2)
  1. ZYTIGA [Suspect]
     Active Substance: ABIRATERONE ACETATE
     Indication: PROSTATE CANCER METASTATIC
     Dosage: REGIMEN#1
     Route: 048
  2. PREDNISONE. [Suspect]
     Active Substance: PREDNISONE
     Indication: PROSTATE CANCER METASTATIC
     Route: 048
     Dates: start: 20141014, end: 20150529

REACTIONS (15)
  - Hypoalbuminaemia [Not Recovered/Not Resolved]
  - Spinal column stenosis [Unknown]
  - Lymphocyte count decreased [Not Recovered/Not Resolved]
  - Blood urea increased [Unknown]
  - Fall [Recovered/Resolved]
  - Protein total decreased [Not Recovered/Not Resolved]
  - Hypocalcaemia [Not Recovered/Not Resolved]
  - Urinary tract infection [Not Recovered/Not Resolved]
  - Muscular weakness [Not Recovered/Not Resolved]
  - Musculoskeletal pain [Recovered/Resolved]
  - Hypertension [Not Recovered/Not Resolved]
  - Dizziness [Not Recovered/Not Resolved]
  - Anaemia [Not Recovered/Not Resolved]
  - Hyponatraemia [Recovered/Resolved]
  - Laceration [Unknown]

NARRATIVE: CASE EVENT DATE: 20150108
